FAERS Safety Report 19911072 (Version 1)
Quarter: 2021Q4

REPORT INFORMATION
  Report Type: Spontaneous
  Country: CN (occurrence: CN)
  Receive Date: 20211004
  Receipt Date: 20211004
  Transmission Date: 20220303
  Serious: Yes (Hospitalization, Other)
  Sender: FDA-Public Use
  Company Number: CN-SUN PHARMACEUTICAL INDUSTRIES LTD-2021R1-312710

PATIENT
  Age: 5 Month
  Sex: Male

DRUGS (12)
  1. ASPIRIN [Suspect]
     Active Substance: ASPIRIN
     Indication: Kawasaki^s disease
     Dosage: 30 MILLIGRAM/KILOGRAM, DAILY
     Route: 065
  2. ASPIRIN [Suspect]
     Active Substance: ASPIRIN
     Indication: Coronary artery aneurysm
     Dosage: 5 MILLIGRAM/KILOGRAM, DAILY
     Route: 065
  3. ASPIRIN [Suspect]
     Active Substance: ASPIRIN
     Indication: Coronary artery thrombosis
     Dosage: 3 MILLIGRAM/KILOGRAM, DAILY
     Route: 048
  4. ASPIRIN [Suspect]
     Active Substance: ASPIRIN
     Indication: Syncope
  5. CLOPIDOGREL [Suspect]
     Active Substance: CLOPIDOGREL BISULFATE
     Indication: Coronary artery thrombosis
     Dosage: 1 MILLIGRAM/KILOGRAM, DAILY
     Route: 065
  6. CLOPIDOGREL [Suspect]
     Active Substance: CLOPIDOGREL BISULFATE
     Indication: Coronary artery aneurysm
  7. CLOPIDOGREL [Suspect]
     Active Substance: CLOPIDOGREL BISULFATE
     Indication: Syncope
  8. UNSPECIFIED INGREDIENT [Suspect]
     Active Substance: UNSPECIFIED INGREDIENT
     Indication: Syncope
     Dosage: 85 IU/KG EVERY 12 H
     Route: 058
  9. MANNITOL [Suspect]
     Active Substance: MANNITOL
     Indication: Body temperature abnormal
     Dosage: UNK
     Route: 065
  10. MANNITOL [Suspect]
     Active Substance: MANNITOL
     Indication: Diabetes mellitus management
  11. UROKINASE [Suspect]
     Active Substance: UROKINASE
     Indication: Cerebral infarction
     Dosage: 4 X 10^3 U/KG/DAY
     Route: 065
  12. UROKINASE [Suspect]
     Active Substance: UROKINASE
     Indication: Coronary artery thrombosis

REACTIONS (6)
  - Condition aggravated [Unknown]
  - Seizure [Unknown]
  - Loss of consciousness [Unknown]
  - Pupils unequal [Unknown]
  - Haemorrhagic stroke [Unknown]
  - Brain oedema [Unknown]
